FAERS Safety Report 14253858 (Version 3)
Quarter: 2018Q2

REPORT INFORMATION
  Report Type: Spontaneous
  Country: US (occurrence: US)
  Receive Date: 20171205
  Receipt Date: 20180508
  Transmission Date: 20180711
  Serious: Yes (Hospitalization, Other)
  Sender: FDA-Public Use
  Company Number: US-DSJP-DSU-2017-146797

PATIENT

DRUGS (1)
  1. TRIBENZOR [Suspect]
     Active Substance: AMLODIPINE BESYLATE\HYDROCHLOROTHIAZIDE\OLMESARTAN MEDOXOMIL
     Indication: HYPERTENSION
     Dosage: 20/5/12.5, QD
     Dates: start: 20101106, end: 20121115

REACTIONS (8)
  - Inflammatory bowel disease [Unknown]
  - Diverticulitis [Recovered/Resolved]
  - Diverticulum intestinal [Unknown]
  - Gastroenteritis viral [Not Recovered/Not Resolved]
  - Clostridium difficile infection [Unknown]
  - Acute kidney injury [Recovered/Resolved]
  - Cholecystitis [Unknown]
  - Sprue-like enteropathy [Not Recovered/Not Resolved]

NARRATIVE: CASE EVENT DATE: 201210
